FAERS Safety Report 13825115 (Version 1)
Quarter: 2017Q3

REPORT INFORMATION
  Report Type: Spontaneous
  Country: US (occurrence: US)
  Receive Date: 20170802
  Receipt Date: 20170802
  Transmission Date: 20171127
  Serious: No
  Sender: FDA-Public Use
  Company Number: US-IGSA-SR10004870

PATIENT
  Age: 75 Year
  Sex: Female
  Weight: 80.4 kg

DRUGS (11)
  1. AMIODARONE [Concomitant]
     Active Substance: AMIODARONE
  2. HYOSCYAMINE. [Concomitant]
     Active Substance: HYOSCYAMINE
  3. ESTRADIOL. [Concomitant]
     Active Substance: ESTRADIOL
  4. GABAPENTIN. [Concomitant]
     Active Substance: GABAPENTIN
  5. DIAZEPAM. [Concomitant]
     Active Substance: DIAZEPAM
  6. TRAMADOL. [Concomitant]
     Active Substance: TRAMADOL
     Dosage: UNK UNK, PRN
  7. GAMUNEX-C [Suspect]
     Active Substance: HUMAN IMMUNOGLOBULIN G
     Indication: HYPOGAMMAGLOBULINAEMIA
     Dosage: 500 G, Q.2WK.
     Route: 042
     Dates: start: 201702
  8. CARVEDILOL. [Concomitant]
     Active Substance: CARVEDILOL
  9. WARFARIN [Concomitant]
     Active Substance: WARFARIN
  10. LIDOCAINE. [Concomitant]
     Active Substance: LIDOCAINE
     Dosage: UNK UNK, PRN
  11. GAMUNEX-C [Suspect]
     Active Substance: HUMAN IMMUNOGLOBULIN G
     Dosage: 500 G, Q.2WK.
     Dates: start: 20170510

REACTIONS (1)
  - Erythema [Recovering/Resolving]

NARRATIVE: CASE EVENT DATE: 201704
